FAERS Safety Report 4911182-7 (Version None)
Quarter: 2006Q1

REPORT INFORMATION
  Report Type: 
  Country: None (occurrence: None)
  Receive Date: 20060209
  Receipt Date: 20060131
  Transmission Date: 20060701
  Serious: Yes (Other)
  Sender: FDA-Public Use
  Company Number: 20060013

PATIENT
  Age: 47 Year
  Sex: Female

DRUGS (1)
  1. VENOFER [Suspect]
     Indication: IRON DEFICIENCY
     Dosage: 200 MG/250 ML 0.9%,   NS INTRAVENOUS DEIP
     Route: 041
     Dates: start: 20060111, end: 20060111

REACTIONS (14)
  - CHILLS [None]
  - CHROMATURIA [None]
  - FEELING COLD [None]
  - FEELING HOT [None]
  - FLUSHING [None]
  - FOAMING AT MOUTH [None]
  - HEADACHE [None]
  - NAUSEA [None]
  - PARAESTHESIA [None]
  - PERIPHERAL COLDNESS [None]
  - SKIN DISCOLOURATION [None]
  - SYNCOPE [None]
  - THIRST [None]
  - VOMITING [None]
